FAERS Safety Report 13347366 (Version 1)
Quarter: 2017Q1

REPORT INFORMATION
  Report Type: Spontaneous
  Country: IT (occurrence: IT)
  Receive Date: 20170317
  Receipt Date: 20170317
  Transmission Date: 20170428
  Serious: Yes (Hospitalization, Other)
  Sender: FDA-Public Use
  Company Number: IT-DEPOMED, INC.-IT-2017DEP000588

PATIENT

DRUGS (2)
  1. DONA /00943604/ [Suspect]
     Active Substance: GLUCOSAMINE SULFATE SODIUM CHLORIDE
     Indication: ARTHRALGIA
     Dosage: 1 DF, QD
     Route: 048
     Dates: start: 20161220, end: 20170107
  2. DICLOFENAC POTASSIUM. [Suspect]
     Active Substance: DICLOFENAC POTASSIUM
     Indication: ARTHRALGIA
     Dosage: 1 DF, QD
     Route: 048
     Dates: start: 20161220, end: 20170107

REACTIONS (4)
  - Eosinophil count decreased [Unknown]
  - Eosinophil count increased [Unknown]
  - Tubulointerstitial nephritis [Unknown]
  - Acute kidney injury [Recovering/Resolving]

NARRATIVE: CASE EVENT DATE: 20170107
